FAERS Safety Report 17956946 (Version 2)
Quarter: 2020Q3

REPORT INFORMATION
  Report Type: Spontaneous
  Country: GB (occurrence: GB)
  Receive Date: 20200629
  Receipt Date: 20200714
  Transmission Date: 20201103
  Serious: Yes (Death, Other)
  Sender: FDA-Public Use
  Company Number: GB-AUROBINDO-AUR-APL-2020-030817

PATIENT
  Age: 52 Year
  Sex: Male

DRUGS (8)
  1. MELATONIN [Concomitant]
     Active Substance: MELATONIN
     Indication: PRODUCT USED FOR UNKNOWN INDICATION
     Dosage: 2 MILLIGRAM, ONCE A DAY (NIGHT)
     Route: 065
  2. CLOBAZAM. [Concomitant]
     Active Substance: CLOBAZAM
     Indication: PRODUCT USED FOR UNKNOWN INDICATION
     Dosage: 10 MILLIGRAM, ONCE A DAY (NIGHT )
     Route: 065
  3. VENTOLIN [Concomitant]
     Active Substance: ALBUTEROL SULFATE
     Indication: WHEEZING
     Dosage: 100 MICROGRAM(1?2 PUFFS FOUR HOURLY WHEN REQUIRED, MAXIMUM OF 8 PUFFS IN 24 HOURS)
     Route: 065
  4. AIRFLUSAL [Concomitant]
     Active Substance: FLUTICASONE FUROATE\SALMETEROL XINAFOATE
     Indication: PRODUCT USED FOR UNKNOWN INDICATION
     Dosage: 4 DOSAGE FORM, ONCE A DAY(2 PUFFS, 25MCG/DOSE/250MCG/DOSE)
     Route: 065
  5. SODIUM VALPROATE [Concomitant]
     Active Substance: VALPROATE SODIUM
     Indication: PRODUCT USED FOR UNKNOWN INDICATION
     Dosage: 500 MILLIGRAM, ONCE A DAY
     Route: 065
  6. OLANZAPINE. [Suspect]
     Active Substance: OLANZAPINE
     Indication: MENTAL DISORDER
     Dosage: 2 DOSAGE FORM, ONCE A DAY
     Route: 065
  7. OMEPRAZOLE. [Concomitant]
     Active Substance: OMEPRAZOLE
     Indication: PRODUCT USED FOR UNKNOWN INDICATION
     Dosage: 20 MILLIGRAM, ONCE A DAY
     Route: 065
  8. CODEINE PHOSPHATE [Suspect]
     Active Substance: CODEINE PHOSPHATE
     Indication: ANALGESIC THERAPY
     Dosage: 90 MILLIGRAM, ONCE A DAY
     Route: 048
     Dates: start: 20180102, end: 20200118

REACTIONS (10)
  - Memory impairment [Unknown]
  - Cold sweat [Unknown]
  - Emotional disorder [Unknown]
  - Dysarthria [Unknown]
  - Somnolence [Unknown]
  - Toxicity to various agents [Fatal]
  - Drug dependence [Unknown]
  - Dyspnoea [Unknown]
  - Hypersomnia [Unknown]
  - Cyanosis [Unknown]

NARRATIVE: CASE EVENT DATE: 20200119
